FAERS Safety Report 25623975 (Version 1)
Quarter: 2025Q3

REPORT INFORMATION
  Report Type: Spontaneous
  Country: US (occurrence: US)
  Receive Date: 20250730
  Receipt Date: 20250730
  Transmission Date: 20251021
  Serious: No
  Sender: SANOFI AVENTIS
  Company Number: US-SA-2025SA213795

PATIENT
  Age: 57 Year
  Sex: Female

DRUGS (1)
  1. DUPIXENT [Suspect]
     Active Substance: DUPILUMAB
     Dosage: 300 MG, QW
     Route: 058

REACTIONS (6)
  - Hyperhidrosis [Unknown]
  - Skin odour abnormal [Unknown]
  - Dehydration [Unknown]
  - Conjunctivitis [Unknown]
  - Eye discharge [Unknown]
  - Eyelid margin crusting [Unknown]
